FAERS Safety Report 10171439 (Version 1)
Quarter: 2014Q2

REPORT INFORMATION
  Report Type: Spontaneous
  Country: US (occurrence: None)
  Receive Date: 20140506
  Receipt Date: 20140506
  Transmission Date: 20141212
  Serious: Yes (Other)
  Sender: FDA-Public Use
  Company Number: 2014040383

PATIENT
  Age: 16 Year
  Sex: Female

DRUGS (2)
  1. STIMATE [Suspect]
     Indication: VON WILLEBRAND^S DISEASE
     Route: 045
     Dates: start: 20131227, end: 20131227
  2. PLAQUENIL (HYDROXYCHOROQUINE PHOSPHATE) [Concomitant]

REACTIONS (1)
  - Drug ineffective [None]
